FAERS Safety Report 7743391-6 (Version None)
Quarter: 2011Q3

REPORT INFORMATION
  Report Type: 
  Country: None (occurrence: None)
  Receive Date: 20110906
  Receipt Date: 20110823
  Transmission Date: 20111222
  Serious: Yes (Hospitalization, Other)
  Sender: FDA-Public Use
  Company Number: 2010SP019044

PATIENT
  Age: 30 Year
  Sex: Female
  Weight: 77.1115 kg

DRUGS (1)
  1. NUVARING [Suspect]
     Indication: CONTRACEPTION
     Dates: start: 20040722, end: 20051001

REACTIONS (16)
  - ADNEXA UTERI MASS [None]
  - UTERINE LEIOMYOMA [None]
  - VAGINAL INFECTION [None]
  - DISEASE RECURRENCE [None]
  - RHINITIS ALLERGIC [None]
  - ACQUIRED GENE MUTATION [None]
  - PROTEIN C DECREASED [None]
  - DEEP VEIN THROMBOSIS [None]
  - ECZEMA [None]
  - ANTEPARTUM HAEMORRHAGE [None]
  - PULMONARY EMBOLISM [None]
  - ANAEMIA [None]
  - MATERNAL EXPOSURE DURING PREGNANCY [None]
  - PROTEIN S DECREASED [None]
  - ECTOPIC PREGNANCY WITH INTRAUTERINE DEVICE [None]
  - PLATELET COUNT DECREASED [None]
